FAERS Safety Report 5016415-7 (Version None)
Quarter: 2006Q2

REPORT INFORMATION
  Report Type: 
  Country: None (occurrence: None)
  Receive Date: 20060602
  Receipt Date: 20060106
  Transmission Date: 20061013
  Serious: Yes (Life-Threatening, Hospitalization)
  Sender: FDA-Public Use
  Company Number: 2006AP00043

PATIENT
  Age: 24935 Day
  Sex: Female
  Weight: 50 kg

DRUGS (10)
  1. IRESSA [Suspect]
     Indication: LUNG ADENOCARCINOMA
     Route: 048
     Dates: start: 20051109, end: 20060105
  2. DECADRON SRC [Suspect]
     Indication: RASH
     Route: 042
     Dates: start: 20051027, end: 20051027
  3. DECADRON SRC [Suspect]
     Indication: BRAIN OEDEMA
     Route: 042
     Dates: start: 20051027, end: 20051027
  4. DECADRON SRC [Suspect]
     Route: 048
     Dates: start: 20051028, end: 20051221
  5. DECADRON SRC [Suspect]
     Route: 048
     Dates: start: 20051028, end: 20051221
  6. PRIMPERAN TAB [Concomitant]
     Indication: VOMITING
     Route: 048
     Dates: start: 20051102, end: 20060105
  7. LUDIOMIL [Concomitant]
     Indication: INSOMNIA
     Route: 048
     Dates: start: 20051115, end: 20060105
  8. GLYCERON [Concomitant]
     Indication: HEPATIC FUNCTION ABNORMAL
     Route: 048
     Dates: end: 20060105
  9. MYSLEE [Concomitant]
     Indication: INSOMNIA
     Route: 048
     Dates: end: 20060105
  10. RISPERDAL [Concomitant]
     Indication: ANXIETY
     Route: 048
     Dates: end: 20060105

REACTIONS (7)
  - ANAEMIA [None]
  - COGNITIVE DISORDER [None]
  - DIARRHOEA [None]
  - DUODENAL ULCER [None]
  - DUODENAL ULCER HAEMORRHAGE [None]
  - HAEMATEMESIS [None]
  - HYPOKALAEMIA [None]
